FAERS Safety Report 20921653 (Version 1)
Quarter: 2022Q2

REPORT INFORMATION
  Report Type: Spontaneous
  Country: US (occurrence: US)
  Receive Date: 20220606
  Receipt Date: 20220606
  Transmission Date: 20220720
  Serious: Yes (Hospitalization, Other)
  Sender: FDA-Public Use
  Company Number: US-CELGENE-USA-2015103011

PATIENT
  Age: 74 Year
  Sex: Female
  Weight: 65.0 kg

DRUGS (14)
  1. VIDAZA [Suspect]
     Active Substance: AZACITIDINE
     Indication: Acute myeloid leukaemia
     Dosage: DAILY, ON DAYS 1-7
     Route: 058
     Dates: start: 20150808, end: 20150824
  2. GLASDEGIB [Suspect]
     Active Substance: GLASDEGIB
     Indication: Acute myeloid leukaemia
     Route: 048
     Dates: start: 20150819, end: 20150831
  3. GLASDEGIB [Suspect]
     Active Substance: GLASDEGIB
     Route: 048
     Dates: start: 20150905, end: 20150908
  4. MAGNESIUM [Concomitant]
     Active Substance: MAGNESIUM
     Route: 065
     Dates: start: 20130818
  5. MAGNESIUM [Concomitant]
     Active Substance: MAGNESIUM
     Indication: Muscle spasms
  6. PROGESTERONE [Concomitant]
     Active Substance: PROGESTERONE
     Route: 065
     Dates: start: 20110818
  7. PROGESTERONE [Concomitant]
     Active Substance: PROGESTERONE
     Indication: Psoriasis
  8. ATIVAN [Concomitant]
     Active Substance: LORAZEPAM
     Route: 065
     Dates: start: 20150818, end: 20150818
  9. ATIVAN [Concomitant]
     Active Substance: LORAZEPAM
     Indication: Nausea
  10. BENADRYL [Concomitant]
     Active Substance: DIPHENHYDRAMINE HYDROCHLORIDE
     Indication: Psoriasis
     Route: 065
     Dates: start: 20110818
  11. ZYRTEC [Concomitant]
     Active Substance: CETIRIZINE HYDROCHLORIDE
     Indication: Seasonal allergy
     Route: 065
     Dates: start: 20050818
  12. COMPAZINE [Concomitant]
     Active Substance: PROCHLORPERAZINE MALEATE
     Indication: Nausea
     Route: 065
     Dates: start: 20150818, end: 20150818
  13. Biest 50-50 [Concomitant]
     Indication: Hormone replacement therapy
     Route: 065
     Dates: start: 20130818
  14. VITAMINS [Concomitant]
     Active Substance: VITAMINS
     Indication: Routine health maintenance
     Route: 065
     Dates: start: 1951

REACTIONS (2)
  - Febrile neutropenia [Recovered/Resolved]
  - Non-small cell lung cancer [Not Recovered/Not Resolved]

NARRATIVE: CASE EVENT DATE: 20150901
